FAERS Safety Report 7075106-1 (Version None)
Quarter: 2010Q4

REPORT INFORMATION
  Report Type: 
  Country: None (occurrence: None)
  Receive Date: 20101029
  Receipt Date: 20100304
  Transmission Date: 20110411
  Serious: No
  Sender: FDA-Public Use
  Company Number: US-WYE-H13983710

PATIENT
  Age: 59 Year
  Sex: Female
  Weight: 58.11 kg

DRUGS (3)
  1. ADVIL PM [Suspect]
     Indication: INSOMNIA
     Dosage: 1 CAPLET X 1
     Route: 048
     Dates: start: 20100303, end: 20100303
  2. ADVIL PM [Suspect]
     Indication: MUSCLE SPASMS
  3. VERAPAMIL [Concomitant]

REACTIONS (2)
  - DRUG INEFFECTIVE [None]
  - PALPITATIONS [None]
